FAERS Safety Report 6661217-9 (Version None)
Quarter: 2010Q1

REPORT INFORMATION
  Report Type: 
  Country: None (occurrence: None)
  Receive Date: 20100331
  Receipt Date: 20100323
  Transmission Date: 20100710
  Serious: Yes (Hospitalization)
  Sender: FDA-Public Use
  Company Number: JP-ROCHE-694025

PATIENT
  Sex: Male
  Weight: 50 kg

DRUGS (11)
  1. TOCILIZUMAB [Suspect]
     Indication: RHEUMATOID ARTHRITIS
     Route: 041
     Dates: start: 20090723, end: 20090723
  2. REMICADE [Suspect]
     Indication: RHEUMATOID ARTHRITIS
     Dosage: DOSE FORM: PERORAL AGENT
     Route: 048
     Dates: start: 20080709, end: 20090528
  3. METHOTREXATE [Concomitant]
     Dosage: DOSE FORM: PERORAL AGENT
     Route: 048
  4. PREDNISOLONE [Concomitant]
     Dosage: DOSE FORM: PERORAL AGENT
     Route: 048
  5. LANSOPRAZOLE [Concomitant]
     Route: 048
  6. LIPITOR [Concomitant]
     Route: 048
  7. EUGLUCON [Concomitant]
     Route: 048
  8. FOLIC ACID [Concomitant]
     Route: 048
  9. MAGMITT [Concomitant]
     Route: 048
  10. PRORENAL [Concomitant]
     Route: 048
  11. FLIVAS [Concomitant]
     Route: 048

REACTIONS (1)
  - BLADDER CANCER [None]
